FAERS Safety Report 5269440-5 (Version None)
Quarter: 2007Q1

REPORT INFORMATION
  Report Type: 
  Country: None (occurrence: None)
  Receive Date: 20070320
  Receipt Date: 20070313
  Transmission Date: 20070707
  Serious: Yes (Life-Threatening)
  Sender: FDA-Public Use
  Company Number: HQWYE536113MAR07

PATIENT
  Age: 16 Year
  Sex: Male

DRUGS (3)
  1. CORDARONE [Suspect]
     Indication: ATRIAL FIBRILLATION
     Route: 042
     Dates: start: 20070123, end: 20070123
  2. PROPRANOLOL [Concomitant]
     Indication: ARRHYTHMIA
     Route: 048
     Dates: start: 20061201
  3. MULTI-VITAMINS [Concomitant]
     Indication: VITAMIN SUPPLEMENTATION
     Route: 048

REACTIONS (3)
  - DYSPNOEA [None]
  - ERYTHEMA [None]
  - VOMITING [None]
